FAERS Safety Report 7838444-8 (Version None)
Quarter: 2011Q4

REPORT INFORMATION
  Report Type: 
  Country: None (occurrence: None)
  Receive Date: 20111024
  Receipt Date: 20111014
  Transmission Date: 20120403
  Serious: Yes (Disabling)
  Sender: FDA-Public Use
  Company Number: US-MERCK-1104USA02995

PATIENT
  Sex: Male

DRUGS (3)
  1. PROPECIA [Suspect]
     Indication: ALOPECIA
     Route: 048
     Dates: start: 20100219, end: 20100731
  2. FINASTERIDE [Suspect]
     Indication: ALOPECIA
     Route: 048
     Dates: start: 20100219, end: 20100731
  3. TRAZODONE HYDROCHLORIDE [Concomitant]
     Route: 065

REACTIONS (8)
  - SEXUAL DYSFUNCTION [None]
  - EMOTIONAL DISTRESS [None]
  - DEPRESSION [None]
  - PENIS DISORDER [None]
  - TESTICULAR ATROPHY [None]
  - ANXIETY [None]
  - ERECTILE DYSFUNCTION [None]
  - TESTICULAR PAIN [None]
